FAERS Safety Report 11595564 (Version 3)
Quarter: 2015Q4

REPORT INFORMATION
  Report Type: Report from Study
  Country: US (occurrence: US)
  Receive Date: 20151006
  Receipt Date: 20151104
  Transmission Date: 20160304
  Serious: No
  Sender: FDA-Public Use
  Company Number: US-AMGEN-USASP2015101321

PATIENT
  Age: 72 Year
  Sex: Female

DRUGS (2)
  1. ENBREL [Suspect]
     Active Substance: ETANERCEPT
     Indication: PSORIASIS
     Dosage: UNK
     Route: 065
  2. ENBREL [Suspect]
     Active Substance: ETANERCEPT
     Indication: PSORIATIC ARTHROPATHY
     Dosage: UNK
     Route: 065

REACTIONS (9)
  - Drug administered at inappropriate site [Unknown]
  - Nasopharyngitis [Unknown]
  - Contusion [Unknown]
  - Psoriasis [Unknown]
  - Arthralgia [Unknown]
  - Injury associated with device [Unknown]
  - Injection site pain [Unknown]
  - Device difficult to use [Unknown]
  - Device issue [Unknown]
